FAERS Safety Report 8175808-X (Version None)
Quarter: 2012Q1

REPORT INFORMATION
  Report Type: 
  Country: None (occurrence: None)
  Receive Date: 20120228
  Receipt Date: 20120228
  Transmission Date: 20120608
  Serious: No
  Sender: FDA-Public Use
  Company Number: None

PATIENT
  Age: 72 Year
  Sex: Female

DRUGS (9)
  1. LATANOPROST [Concomitant]
  2. LOSARTAN POTASSIUM [Concomitant]
  3. SEPTRA [Concomitant]
  4. MELOXICAM [Concomitant]
  5. GLIPIZIDE [Concomitant]
  6. ZOCOR [Concomitant]
  7. LEVOTHYROXINE SODIUM [Concomitant]
  8. METFORMIN HCL [Concomitant]
  9. REVLIMID [Suspect]
     Indication: MYELODYSPLASTIC SYNDROME
     Dosage: 5MG DAILY ORALLY
     Route: 048
     Dates: start: 20110701, end: 20120201

REACTIONS (3)
  - MYELODYSPLASTIC SYNDROME [None]
  - DISEASE PROGRESSION [None]
  - PANCYTOPENIA [None]
